FAERS Safety Report 4289083-X (Version None)
Quarter: 2004Q1

REPORT INFORMATION
  Report Type: 
  Country: None (occurrence: None)
  Receive Date: 20040130
  Receipt Date: 20031209
  Transmission Date: 20041129
  Serious: No
  Sender: FDA-Public Use
  Company Number: WAES 0312USA01075

PATIENT

DRUGS (3)
  1. EMEND [Suspect]
     Indication: PROPHYLAXIS OF NAUSEA AND VOMITING
     Dosage: 125 MG/1X/PO : 80MG/DAILY/PO
     Route: 048
     Dates: start: 20030101
  2. EMEND [Suspect]
     Indication: PROPHYLAXIS OF NAUSEA AND VOMITING
     Dosage: 125 MG/1X/PO : 80MG/DAILY/PO
     Route: 048
     Dates: start: 20030101
  3. CISPLATIN [Concomitant]

REACTIONS (1)
  - LIVER FUNCTION TEST ABNORMAL [None]
